FAERS Safety Report 10464640 (Version 1)
Quarter: 2014Q3

REPORT INFORMATION
  Report Type: Spontaneous
  Country: US (occurrence: US)
  Receive Date: 20140919
  Receipt Date: 20140919
  Transmission Date: 20150326
  Serious: No
  Sender: FDA-Public Use
  Company Number: US-PFIZER INC-2014256612

PATIENT
  Age: 81 Year
  Sex: Female
  Weight: 68.48 kg

DRUGS (7)
  1. MAGNESIUM OXIDE. [Concomitant]
     Active Substance: MAGNESIUM OXIDE
     Dosage: UNK
  2. ALENDRONATE SODIUM. [Concomitant]
     Active Substance: ALENDRONATE SODIUM
     Dosage: 70 MG, 1X/DAY
     Route: 048
  3. POTASSIUM CHLORIDE. [Concomitant]
     Active Substance: POTASSIUM CHLORIDE
     Dosage: UNK
  4. NEURONTIN [Suspect]
     Active Substance: GABAPENTIN
     Dosage: 300 MG, 1X/DAY (TAKING THREE CAPSULES AT BED TIME)
     Route: 048
     Dates: end: 201409
  5. OXYBUTYNIN [Concomitant]
     Active Substance: OXYBUTYNIN
     Dosage: UNK, 1X/DAY
     Route: 048
  6. VITAMIN B12 [Concomitant]
     Active Substance: CYANOCOBALAMIN
     Dosage: UNK
  7. LOSARTAN [Concomitant]
     Active Substance: LOSARTAN
     Dosage: UNK

REACTIONS (6)
  - Tremor [Unknown]
  - Rash [Unknown]
  - Feeling abnormal [Unknown]
  - Restlessness [Unknown]
  - Depression [Unknown]
  - Insomnia [Unknown]

NARRATIVE: CASE EVENT DATE: 201409
